FAERS Safety Report 17194377 (Version 2)
Quarter: 2020Q1

REPORT INFORMATION
  Report Type: Spontaneous
  Country: GR (occurrence: GR)
  Receive Date: 20191224
  Receipt Date: 20200110
  Transmission Date: 20200409
  Serious: Yes (Other)
  Sender: FDA-Public Use
  Company Number: GR-AMGEN-GRCSP2019210881

PATIENT
  Age: 44 Year
  Sex: Male

DRUGS (8)
  1. CAPECITABINE. [Concomitant]
     Active Substance: CAPECITABINE
     Indication: COLORECTAL CANCER METASTATIC
     Dosage: 1000 MILLIGRAM/SQ. METER, BID (ON DAYS 1-14)
     Route: 048
     Dates: start: 201205, end: 2013
  2. PANITUMUMAB [Suspect]
     Active Substance: PANITUMUMAB
     Dosage: 480 MILLIGRAM/KILOGRAM, Q2WK
     Route: 042
     Dates: start: 201612, end: 2017
  3. PANITUMUMAB [Suspect]
     Active Substance: PANITUMUMAB
     Indication: COLORECTAL CANCER METASTATIC
     Dosage: 8 MILLIGRAM/KILOGRAM
     Route: 065
     Dates: start: 201301, end: 2013
  4. 5-FLUOROURACIL [FLUOROURACIL] [Concomitant]
     Active Substance: FLUOROURACIL
     Indication: COLORECTAL CANCER METASTATIC
     Dosage: 400 MILLIGRAM/SQ. METER, CYCLICAL (ON DAY 1)
     Route: 042
     Dates: start: 201612, end: 2017
  5. 5-FLUOROURACIL [FLUOROURACIL] [Concomitant]
     Active Substance: FLUOROURACIL
     Dosage: 4800 MILLIGRAM/SQ. METER, CYCLICAL (OVER 2 DAYS)
     Route: 042
     Dates: start: 201612, end: 2017
  6. OXALIPLATIN. [Concomitant]
     Active Substance: OXALIPLATIN
     Indication: COLORECTAL CANCER METASTATIC
     Dosage: 130 MILLIGRAM/SQ. METER, Q3WK, ( ON DAY 1 EVERY 3 WEEKS)
     Route: 042
     Dates: start: 201205, end: 2013
  7. IRINOTECAN [Concomitant]
     Active Substance: IRINOTECAN
     Indication: COLORECTAL CANCER METASTATIC
     Dosage: 180 MILLIGRAM/SQ. METER, CYCLICAL
     Route: 042
     Dates: start: 201612, end: 2017
  8. LEUCOVORINE [Concomitant]
     Active Substance: LEUCOVORIN
     Indication: COLORECTAL CANCER METASTATIC
     Dosage: 400 MILLIGRAM/SQ. METER, CYCLICAL
     Route: 042
     Dates: start: 201612, end: 2017

REACTIONS (4)
  - Overdose [Unknown]
  - Off label use [Unknown]
  - Colorectal cancer metastatic [Unknown]
  - Gene mutation [Unknown]

NARRATIVE: CASE EVENT DATE: 201301
